FAERS Safety Report 8463284-9 (Version None)
Quarter: 2012Q2

REPORT INFORMATION
  Report Type: 
  Country: None (occurrence: None)
  Receive Date: 20120625
  Receipt Date: 20120621
  Transmission Date: 20120825
  Serious: Yes (Other)
  Sender: FDA-Public Use
  Company Number: US-BAYER-2012-062151

PATIENT
  Age: 55 Year
  Sex: Female

DRUGS (8)
  1. BETASERON [Suspect]
     Dosage: 0.3 MG, QOD
  2. SIMVASTATIN [Concomitant]
     Dosage: 40 MG, UNK
  3. ASCORBIC ACID [Concomitant]
     Dosage: 500 MG, UNK
  4. MEMORY VITE [Concomitant]
  5. VITAMIN D [Concomitant]
     Dosage: UNK
  6. LEXAPRO [Concomitant]
     Dosage: 20 MG, UNK
  7. PROVIGIL [Concomitant]
     Dosage: 100 MG, UNK
  8. GARLIC OIL [ALLIUM SATIVUM] [Concomitant]

REACTIONS (1)
  - INJECTION SITE ULCER [None]
